FAERS Safety Report 7478500-X (Version None)
Quarter: 2011Q2

REPORT INFORMATION
  Report Type: 
  Country: None (occurrence: None)
  Receive Date: 20110513
  Receipt Date: 20110503
  Transmission Date: 20111010
  Serious: Yes (Hospitalization)
  Sender: FDA-Public Use
  Company Number: PHHY2011US37442

PATIENT
  Sex: Female

DRUGS (9)
  1. BETASERON [Suspect]
     Dosage: UNK UKN, UNK
  2. FAMPRIDINE [Concomitant]
  3. ALLEGRA [Concomitant]
  4. FOSAMAX [Concomitant]
  5. ROPINIROLE [Concomitant]
  6. ESTRADIOL [Concomitant]
  7. GILENYA [Suspect]
     Indication: MULTIPLE SCLEROSIS
     Dosage: 0.5 MG, QD
     Route: 048
     Dates: start: 20110427
  8. BUSPAR [Concomitant]
     Dosage: UNK
  9. NITROFURAN [Concomitant]

REACTIONS (2)
  - INFECTION [None]
  - HEART RATE DECREASED [None]
